FAERS Safety Report 5318914-7 (Version None)
Quarter: 2007Q2

REPORT INFORMATION
  Report Type: 
  Country: None (occurrence: None)
  Receive Date: 20070503
  Receipt Date: 20070417
  Transmission Date: 20071010
  Serious: Yes (Hospitalization)
  Sender: FDA-Public Use
  Company Number: 8023391

PATIENT
  Age: 84 Year
  Sex: Female

DRUGS (5)
  1. KEPPRA. MFR:  NOT SPECIFIED [Suspect]
     Indication: CONVULSION
     Dosage: 250 MG /D PO
     Route: 048
     Dates: start: 20070204, end: 20070207
  2. BENZODIAZEPINES [Concomitant]
  3. EUTHYROX [Concomitant]
  4. ENAHEXAL /00574902/ [Concomitant]
  5. PLANUM /00393701/ [Concomitant]

REACTIONS (4)
  - AGGRESSION [None]
  - CONFUSIONAL STATE [None]
  - DISORIENTATION [None]
  - RESTLESSNESS [None]
